APPROVED DRUG PRODUCT: CARBIDOPA AND LEVODOPA
Active Ingredient: CARBIDOPA; LEVODOPA
Strength: 25MG;100MG
Dosage Form/Route: TABLET, EXTENDED RELEASE;ORAL
Application: A076212 | Product #001
Applicant: APOTEX INC
Approved: Jun 16, 2004 | RLD: No | RS: No | Type: DISCN